FAERS Safety Report 7141584-2 (Version None)
Quarter: 2010Q4

REPORT INFORMATION
  Report Type: 
  Country: None (occurrence: None)
  Receive Date: 20101207
  Receipt Date: 20101124
  Transmission Date: 20110411
  Serious: Yes (Death, Hospitalization)
  Sender: FDA-Public Use
  Company Number: US-ELI_LILLY_AND_COMPANY-US201011006605

PATIENT
  Sex: Female

DRUGS (3)
  1. ZYPREXA [Suspect]
     Indication: DEPRESSION
     Dosage: 10 MG, UNK
     Dates: start: 20090801
  2. ZYPREXA [Suspect]
     Dosage: 20 MG, UNK
     Dates: end: 20091001
  3. LAMICTAL [Concomitant]

REACTIONS (5)
  - COMPLETED SUICIDE [None]
  - OFF LABEL USE [None]
  - STRESS [None]
  - SUICIDAL BEHAVIOUR [None]
  - VISUAL IMPAIRMENT [None]
